FAERS Safety Report 9287754 (Version 1)
Quarter: 2013Q2

REPORT INFORMATION
  Report Type: Spontaneous
  Country: US (occurrence: US)
  Receive Date: 20130514
  Receipt Date: 20130514
  Transmission Date: 20140414
  Serious: No
  Sender: FDA-Public Use
  Company Number: US-PFIZER INC-2013119964

PATIENT
  Sex: 0

DRUGS (1)
  1. LYRICA [Suspect]
     Dosage: 150 MG, UNK

REACTIONS (4)
  - Dizziness [Unknown]
  - Diarrhoea [Unknown]
  - Pruritus [Unknown]
  - Feeling of body temperature change [Unknown]
